FAERS Safety Report 16905099 (Version 1)
Quarter: 2019Q4

REPORT INFORMATION
  Report Type: Spontaneous
  Country: US (occurrence: US)
  Receive Date: 20191010
  Receipt Date: 20191010
  Transmission Date: 20200122
  Serious: No
  Sender: FDA-Public Use
  Company Number: US-ASTRAZENECA-2019SF29823

PATIENT
  Sex: Male
  Weight: 63.5 kg

DRUGS (10)
  1. FASENRA [Suspect]
     Active Substance: BENRALIZUMAB
     Indication: ASTHMA
     Route: 058
     Dates: start: 201908
  2. ADVAIR HFA [Concomitant]
     Active Substance: FLUTICASONE PROPIONATE\SALMETEROL XINAFOATE
     Indication: ASTHMA
  3. ADVAIR HFA [Concomitant]
     Active Substance: FLUTICASONE PROPIONATE\SALMETEROL XINAFOATE
     Indication: BLOOD IMMUNOGLOBULIN E INCREASED
  4. FASENRA [Suspect]
     Active Substance: BENRALIZUMAB
     Indication: BLOOD IMMUNOGLOBULIN E INCREASED
     Route: 058
     Dates: start: 20190703
  5. BENADRYL [Concomitant]
     Active Substance: DIPHENHYDRAMINE HYDROCHLORIDE
     Indication: ELECTROENCEPHALOGRAM
  6. FASENRA [Suspect]
     Active Substance: BENRALIZUMAB
     Indication: BLOOD IMMUNOGLOBULIN E INCREASED
     Route: 058
     Dates: start: 20190606
  7. FASENRA [Suspect]
     Active Substance: BENRALIZUMAB
     Indication: ASTHMA
     Route: 058
     Dates: start: 20190703
  8. FASENRA [Suspect]
     Active Substance: BENRALIZUMAB
     Indication: BLOOD IMMUNOGLOBULIN E INCREASED
     Route: 058
     Dates: start: 201908
  9. FASENRA [Suspect]
     Active Substance: BENRALIZUMAB
     Indication: ASTHMA
     Route: 058
     Dates: start: 20190606
  10. LEVOCETIRIZINE [Concomitant]
     Active Substance: LEVOCETIRIZINE
     Indication: RASH

REACTIONS (1)
  - Rash pruritic [Not Recovered/Not Resolved]
